FAERS Safety Report 25467416 (Version 1)
Quarter: 2025Q2

REPORT INFORMATION
  Report Type: Spontaneous
  Country: US (occurrence: None)
  Receive Date: 20250621
  Receipt Date: 20250621
  Transmission Date: 20250717
  Serious: Yes (Life-Threatening)
  Sender: FDA-CTU
  Company Number: None

PATIENT
  Age: 77 Year
  Sex: Male

DRUGS (5)
  1. OHTUVAYRE [Suspect]
     Active Substance: ENSIFENTRINE
     Indication: Chronic obstructive pulmonary disease
     Dosage: FREQUENCY : TWICE A DAY;?
     Route: 055
     Dates: start: 20250618, end: 20250621
  2. YUPELRI [Concomitant]
     Active Substance: REVEFENACIN
     Dates: start: 20250618
  3. BUDESONIDE [Concomitant]
     Active Substance: BUDESONIDE
     Dates: start: 20250618
  4. YUPELRI [Concomitant]
     Active Substance: REVEFENACIN
  5. BUDESONIDE [Concomitant]
     Active Substance: BUDESONIDE

REACTIONS (3)
  - Facial paralysis [None]
  - Blood pressure systolic increased [None]
  - Headache [None]

NARRATIVE: CASE EVENT DATE: 20250621
